FAERS Safety Report 10521246 (Version 4)
Quarter: 2015Q1

REPORT INFORMATION
  Report Type: Report from Study
  Country: JP (occurrence: JP)
  Receive Date: 20141016
  Receipt Date: 20150305
  Transmission Date: 20150720
  Serious: Yes (Other)
  Sender: FDA-Public Use
  Company Number: JP-AMGEN-JPNCT2014079609

PATIENT
  Age: 69 Year
  Sex: Female
  Weight: 49 kg

DRUGS (13)
  1. ETODOLAC. [Concomitant]
     Active Substance: ETODOLAC
     Dosage: 400 MG, QD
     Route: 048
     Dates: start: 20121226
  2. TRAMAL [Concomitant]
     Active Substance: TRAMADOL
     Dosage: 150 MG, QD
     Route: 048
     Dates: start: 20121226
  3. BENET [Concomitant]
     Active Substance: RISEDRONATE SODIUM
     Dosage: 17.5 MG, QD
     Route: 048
     Dates: end: 20120608
  4. XALKORI [Concomitant]
     Active Substance: CRIZOTINIB
     Dosage: UNK
     Route: 065
     Dates: start: 20120921
  5. DEXART [Concomitant]
     Active Substance: DEXAMETHASONE SODIUM PHOSPHATE
     Dosage: UNK
     Route: 065
     Dates: start: 20120727, end: 20120824
  6. DENOSUMAB [Suspect]
     Active Substance: DENOSUMAB
     Indication: METASTASES TO BONE
     Dosage: 120 MG, UNK
     Route: 058
     Dates: start: 20120823
  7. TAKEPRON [Concomitant]
     Active Substance: LANSOPRAZOLE
     Dosage: 15 MG, QD
     Route: 048
     Dates: start: 20120608
  8. ALIMTA [Concomitant]
     Active Substance: PEMETREXED DISODIUM
     Dosage: UNK
     Route: 065
     Dates: start: 20120727, end: 20120824
  9. LENDORMIN [Concomitant]
     Active Substance: BROTIZOLAM
     Dosage: 0.25 MG, QD
     Route: 048
     Dates: start: 20140304
  10. CISPLATIN. [Concomitant]
     Active Substance: CISPLATIN
     Dosage: UNK
     Route: 065
     Dates: start: 20120727, end: 20120727
  11. CARBOPLATIN. [Concomitant]
     Active Substance: CARBOPLATIN
     Dosage: UNK
     Route: 065
     Dates: start: 20120727, end: 20120727
  12. DENOTAS [Concomitant]
     Active Substance: CALCIUM CARBONATE\CHOLECALCIFEROL\MAGNESIUM CARBONATE
     Dosage: 2 DF, QD
     Route: 048
     Dates: start: 20130730, end: 20140204
  13. FUROSEMIDE. [Concomitant]
     Active Substance: FUROSEMIDE
     Dosage: 20 MG, QD
     Route: 048
     Dates: start: 20130605

REACTIONS (1)
  - Osteonecrosis of jaw [Not Recovered/Not Resolved]

NARRATIVE: CASE EVENT DATE: 201302
